FAERS Safety Report 6208687-8 (Version None)
Quarter: 2009Q2

REPORT INFORMATION
  Report Type: 
  Country: None (occurrence: None)
  Receive Date: 20090529
  Receipt Date: 20090519
  Transmission Date: 20091009
  Serious: Yes (Other)
  Sender: FDA-Public Use
  Company Number: US-JNJFOC-20090506893

PATIENT
  Sex: Female

DRUGS (1)
  1. RISPERDAL CONSTA [Suspect]
     Indication: DRUG USE FOR UNKNOWN INDICATION
     Dosage: 2 INJECTIONS
     Route: 030

REACTIONS (7)
  - ABASIA [None]
  - BEDRIDDEN [None]
  - DYSPHAGIA [None]
  - HYPERSOMNIA [None]
  - LETHARGY [None]
  - PHARYNGEAL DISORDER [None]
  - VISION BLURRED [None]
